FAERS Safety Report 19839823 (Version 1)
Quarter: 2021Q3

REPORT INFORMATION
  Report Type: Spontaneous
  Country: US (occurrence: US)
  Receive Date: 20210916
  Receipt Date: 20210916
  Transmission Date: 20211014
  Serious: Yes (Other)
  Sender: FDA-Public Use
  Company Number: None

PATIENT
  Age: 82 Year
  Sex: Female
  Weight: 47.6 kg

DRUGS (1)
  1. REGEN?COV [Suspect]
     Active Substance: CASIRIVIMAB\IMDEVIMAB
     Indication: COVID-19
     Route: 041

REACTIONS (7)
  - Dyspnoea [None]
  - Oxygen saturation decreased [None]
  - Chest discomfort [None]
  - Heart rate decreased [None]
  - Syncope [None]
  - Pruritus [None]
  - Blood pressure decreased [None]

NARRATIVE: CASE EVENT DATE: 20210915
